FAERS Safety Report 5429374-X (Version None)
Quarter: 2007Q3

REPORT INFORMATION
  Report Type: 
  Country: None (occurrence: None)
  Receive Date: 20070829
  Receipt Date: 20070806
  Transmission Date: 20080115
  Serious: No
  Sender: FDA-Public Use
  Company Number: US-JNJFOC-20070801696

PATIENT
  Sex: Female
  Weight: 122.47 kg

DRUGS (4)
  1. INVEGA [Suspect]
     Route: 048
  2. INVEGA [Suspect]
     Indication: SCHIZOAFFECTIVE DISORDER
     Dosage: TWO 6 MG TABLETS
     Route: 048
  3. DOXEPIN HCL [Concomitant]
     Indication: DEPRESSION
  4. CYMBALTA [Concomitant]
     Indication: DEPRESSION

REACTIONS (3)
  - ANXIETY [None]
  - DRY MOUTH [None]
  - WEIGHT INCREASED [None]
